FAERS Safety Report 8365866-1 (Version None)
Quarter: 2012Q2

REPORT INFORMATION
  Report Type: 
  Country: None (occurrence: None)
  Receive Date: 20120515
  Receipt Date: 20120507
  Transmission Date: 20120825
  Serious: Yes (Death, Other)
  Sender: FDA-Public Use
  Company Number: 2012MA005786

PATIENT
  Age: 61 Year
  Sex: Male

DRUGS (3)
  1. CARBOPLATIN [Suspect]
     Indication: LUNG ADENOCARCINOMA
     Dosage: 350 MG;BODY
  2. PACLITAXEL [Suspect]
     Indication: LUNG ADENOCARCINOMA
     Dosage: 200 MG/MM^2
  3. BEVACIZUMAB (BEVACIZUMAB) [Suspect]
     Indication: LUNG ADENOCARCINOMA
     Dosage: 15 MG/KG

REACTIONS (1)
  - ICHTHYOSIS [None]
